FAERS Safety Report 4349580-5 (Version None)
Quarter: 2004Q1

REPORT INFORMATION
  Report Type: 
  Country: None (occurrence: None)
  Receive Date: 20040329
  Receipt Date: 20031204
  Transmission Date: 20041129
  Serious: No
  Sender: FDA-Public Use
  Company Number: USA031253936

PATIENT
  Age: 11 Year
  Sex: Male
  Weight: 58 kg

DRUGS (1)
  1. STRATTERA [Suspect]
     Indication: ABNORMAL BEHAVIOUR
     Dosage: 60 MG/DAY

REACTIONS (3)
  - ABDOMINAL PAIN UPPER [None]
  - CRYING [None]
  - FATIGUE [None]
